FAERS Safety Report 7472413-5 (Version None)
Quarter: 2011Q2

REPORT INFORMATION
  Report Type: 
  Country: None (occurrence: None)
  Receive Date: 20110511
  Receipt Date: 20110428
  Transmission Date: 20111010
  Serious: Yes (Other)
  Sender: FDA-Public Use
  Company Number: BR-SOLVAY-00311003624

PATIENT
  Age: 77 Year
  Sex: Female
  Weight: 41 kg

DRUGS (7)
  1. DIOVAN [Concomitant]
     Indication: HYPERTENSION
     Dosage: DIOVAN 160+2.5 MG: DAILY DOSE: 1 DOSAGE FORM
     Route: 048
     Dates: start: 20080101, end: 20080101
  2. DIOVAN [Concomitant]
     Dosage: DIOVAN 80 MG: DAILY DOSE: 1 DOSAGE FORM
     Route: 048
     Dates: start: 20080101, end: 20080101
  3. VITAMINS [Concomitant]
     Indication: PRODUCT USED FOR UNKNOWN INDICATION
     Dosage: DAILY DOSE:  UNKNOWN
     Route: 065
     Dates: start: 20110101
  4. NUTREN [Concomitant]
     Indication: VITAMIN SUPPLEMENTATION
     Dosage: DAILY DOSE:  UNKNOWN
     Route: 065
     Dates: start: 20110101
  5. SYNTHROID [Concomitant]
     Indication: THYROID DISORDER
     Dosage: DAILY DOSE: 1 DOSAGE FORM
     Route: 048
     Dates: start: 20060101
  6. CREON [Suspect]
     Indication: PANCREATIC CYST
     Dosage: DAILY DOSE: 3 DOSAGE FORM
     Route: 048
     Dates: start: 20010101
  7. CALCIUM [Concomitant]
     Indication: PRODUCT USED FOR UNKNOWN INDICATION
     Dosage: DAILY DOSE:  UNKNOWN
     Route: 065

REACTIONS (4)
  - BLOOD PRESSURE INCREASED [None]
  - WEIGHT DECREASED [None]
  - JAUNDICE [None]
  - PANCREATIC OPERATION [None]
